FAERS Safety Report 19133035 (Version 1)
Quarter: 2021Q2

REPORT INFORMATION
  Report Type: Spontaneous
  Country: US (occurrence: US)
  Receive Date: 20210413
  Receipt Date: 20210413
  Transmission Date: 20210717
  Serious: No
  Sender: FDA-Public Use
  Company Number: None

PATIENT
  Age: 53 Year
  Sex: Male

DRUGS (1)
  1. OTEZLA [Suspect]
     Active Substance: APREMILAST
     Indication: PSORIASIS
     Route: 048
     Dates: start: 20140914

REACTIONS (4)
  - Condition aggravated [None]
  - Pruritus [None]
  - Therapy non-responder [None]
  - Symptom recurrence [None]

NARRATIVE: CASE EVENT DATE: 20210301
